FAERS Safety Report 6642779-4 (Version None)
Quarter: 2010Q1

REPORT INFORMATION
  Report Type: 
  Country: None (occurrence: None)
  Receive Date: 20100316
  Receipt Date: 20100303
  Transmission Date: 20100710
  Serious: Yes (Other)
  Sender: FDA-Public Use
  Company Number: BR-1181090

PATIENT

DRUGS (8)
  1. AZOPT [Suspect]
     Indication: GLAUCOMA
     Dosage: 1 GTT, OPHTHALMIC
     Route: 047
     Dates: start: 20000101, end: 20040101
  2. TRAVATAN (TRAVOPROST) [Suspect]
     Dosage: BID, OPHTHALMIC
     Route: 047
     Dates: start: 20040101
  3. XALATAN [Concomitant]
  4. COSPOT (COSOPT) [Concomitant]
  5. ALPHAGAN [Concomitant]
  6. PRESMIN (BETAXOLOL HYDROCHLORIDE) [Concomitant]
  7. COMBIGAN (COMBIGAN) [Concomitant]
  8. DIAMOX [Concomitant]

REACTIONS (10)
  - BLINDNESS UNILATERAL [None]
  - BRONCHIAL DISORDER [None]
  - COUGH [None]
  - DRUG INEFFECTIVE [None]
  - EYE COMPLICATION ASSOCIATED WITH DEVICE [None]
  - GASTROINTESTINAL DISORDER [None]
  - HYPOACUSIS [None]
  - RENAL DISORDER [None]
  - RETINAL DETACHMENT [None]
  - VISUAL ACUITY REDUCED [None]
